FAERS Safety Report 9927483 (Version 2)
Quarter: 2014Q2

REPORT INFORMATION
  Report Type: Report from Study
  Country: US (occurrence: US)
  Receive Date: 20140227
  Receipt Date: 20140404
  Transmission Date: 20141212
  Serious: Yes (Other)
  Sender: FDA-Public Use
  Company Number: PHEH2014US003717

PATIENT
  Age: 28 Year
  Sex: Male

DRUGS (3)
  1. GILENYA [Suspect]
     Indication: MULTIPLE SCLEROSIS
     Dosage: 0.5 MG, QD
     Route: 048
     Dates: start: 201308, end: 201402
  2. SYMBICORT [Concomitant]
     Indication: ASTHMA
     Dosage: 1 DF, BID
  3. ALBUTEROL [Concomitant]

REACTIONS (2)
  - Pulmonary function test decreased [Recovering/Resolving]
  - Dyspnoea [Recovering/Resolving]
